FAERS Safety Report 5427237-7 (Version None)
Quarter: 2007Q3

REPORT INFORMATION
  Report Type: 
  Country: None (occurrence: None)
  Receive Date: 20070828
  Receipt Date: 20070827
  Transmission Date: 20080115
  Serious: Yes (Hospitalization)
  Sender: FDA-Public Use
  Company Number: IT-BRISTOL-MYERS SQUIBB COMPANY-13834486

PATIENT
  Age: 72 Year
  Sex: Male

DRUGS (7)
  1. PARAPLATIN [Suspect]
     Indication: PLEURAL MESOTHELIOMA
     Route: 042
     Dates: start: 20070406, end: 20070406
  2. ALIMTA [Suspect]
     Indication: PLEURAL MESOTHELIOMA
     Route: 042
     Dates: start: 20070406, end: 20070406
  3. BENEXOL [Concomitant]
  4. FOLINGRAV [Concomitant]
     Route: 048
  5. IODINIZED CONTRAST MEDIA [Concomitant]
     Indication: COMPUTERISED TOMOGRAM
  6. CIPROXIN [Concomitant]
  7. CORTICOSTEROID [Concomitant]

REACTIONS (2)
  - TENDON RUPTURE [None]
  - TENDONITIS [None]
